FAERS Safety Report 5664497-1 (Version None)
Quarter: 2008Q1

REPORT INFORMATION
  Report Type: 
  Country: None (occurrence: None)
  Receive Date: 20080314
  Receipt Date: 20080306
  Transmission Date: 20080703
  Serious: Yes (Other)
  Sender: FDA-Public Use
  Company Number: B0511095A

PATIENT
  Sex: Female

DRUGS (2)
  1. DIGIBIND [Suspect]
     Route: 065
  2. DIGOXIN [Suspect]
     Indication: DRUG USE FOR UNKNOWN INDICATION
     Route: 065

REACTIONS (2)
  - CARDIOACTIVE DRUG LEVEL INCREASED [None]
  - THERAPEUTIC AGENT TOXICITY [None]
